FAERS Safety Report 9066117 (Version 1)
Quarter: 2013Q1

REPORT INFORMATION
  Report Type: Report from Study
  Country: US (occurrence: US)
  Receive Date: 20130131
  Receipt Date: 20130131
  Transmission Date: 20140127
  Serious: No
  Sender: FDA-Public Use
  Company Number: US-ABBOTT-12P-163-1016830-00

PATIENT
  Age: 62 Year
  Sex: Female

DRUGS (5)
  1. HUMIRA [Suspect]
     Indication: CROHN^S DISEASE
     Dosage: LOADING DOSE
     Route: 058
     Dates: start: 20121130
  2. CODEINE WITH ACETAMINOPHEN # 4 [Concomitant]
     Indication: DIARRHOEA
  3. DICYCLOMINE [Concomitant]
     Indication: CROHN^S DISEASE
  4. NORETHINDRONE [Concomitant]
     Indication: MENOPAUSE
  5. ESTRACE [Concomitant]
     Indication: PRODUCT USED FOR UNKNOWN INDICATION
     Dosage: 1MG DAILY

REACTIONS (1)
  - Injection site pain [Recovered/Resolved]
